FAERS Safety Report 10750994 (Version 2)
Quarter: 2015Q1

REPORT INFORMATION
  Report Type: Spontaneous
  Country: CO (occurrence: CO)
  Receive Date: 20150130
  Receipt Date: 20150219
  Transmission Date: 20150721
  Serious: Yes (Other)
  Sender: FDA-Public Use
  Company Number: CO-JNJFOC-20150110181

PATIENT
  Age: 75 Year
  Sex: Male

DRUGS (2)
  1. RISPERDAL CONSTA [Suspect]
     Active Substance: RISPERIDONE
     Indication: SCHIZOPHRENIA
     Route: 030
     Dates: start: 20140901
  2. RISPERIDONE. [Concomitant]
     Active Substance: RISPERIDONE
     Route: 048

REACTIONS (3)
  - Subcutaneous abscess [Recovered/Resolved]
  - Aggression [Recovering/Resolving]
  - Muscle atrophy [Not Recovered/Not Resolved]

NARRATIVE: CASE EVENT DATE: 20150108
